FAERS Safety Report 16250902 (Version 1)
Quarter: 2019Q2

REPORT INFORMATION
  Report Type: Spontaneous
  Country: US (occurrence: US)
  Receive Date: 20190426
  Receipt Date: 20190426
  Transmission Date: 20190711
  Serious: No
  Sender: FDA-Public Use
  Company Number: None

PATIENT
  Age: 74 Year
  Sex: Female
  Weight: 63 kg

DRUGS (14)
  1. TYLENOL [Concomitant]
     Active Substance: ACETAMINOPHEN
  2. DICLOFENAC SOD EC [Concomitant]
     Active Substance: DICLOFENAC SODIUM
  3. SYMBICORT [Concomitant]
     Active Substance: BUDESONIDE\FORMOTEROL FUMARATE DIHYDRATE
  4. MULTIVITAMIN [Concomitant]
     Active Substance: VITAMINS
  5. GINKGO BILOBA [Concomitant]
     Active Substance: GINKGO
  6. KETOROLAC [Suspect]
     Active Substance: KETOROLAC\KETOROLAC TROMETHAMINE
     Indication: POST PROCEDURAL INFLAMMATION
     Dosage: ?          QUANTITY:1 DROP(S);?
     Route: 047
     Dates: start: 20190204, end: 20190301
  7. OCUVITE EXTRA [Concomitant]
  8. PROBIOTIC [Concomitant]
     Active Substance: PROBIOTICS NOS
  9. DOXYCYCLINE HYCLATE. [Concomitant]
     Active Substance: DOXYCYCLINE HYCLATE
  10. LEVOTHYROXINE. [Concomitant]
     Active Substance: LEVOTHYROXINE
  11. SERTRALINE HCL [Concomitant]
     Active Substance: SERTRALINE HYDROCHLORIDE
  12. VITAMIN C [Concomitant]
     Active Substance: ASCORBIC ACID
  13. ALBUTERAL [Concomitant]
     Active Substance: ALBUTEROL
  14. VIT. D [Concomitant]

REACTIONS (3)
  - Eye pain [None]
  - Photophobia [None]
  - Corneal perforation [None]

NARRATIVE: CASE EVENT DATE: 20190301
